FAERS Safety Report 17905358 (Version 2)
Quarter: 2021Q2

REPORT INFORMATION
  Report Type: Spontaneous
  Country: None (occurrence: US)
  Receive Date: 20200617
  Receipt Date: 20210629
  Transmission Date: 20210717
  Serious: Yes (Other)
  Sender: FDA-Public Use
  Company Number: US-GLAXOSMITHKLINE-US2020102447

PATIENT
  Sex: Female

DRUGS (8)
  1. RANITIDINE. [Suspect]
     Active Substance: RANITIDINE
     Dosage: UNK, QD
     Route: 065
     Dates: start: 200501, end: 201810
  2. ZANTAC [Suspect]
     Active Substance: RANITIDINE HYDROCHLORIDE
     Dosage: UNK UNK, QD
     Route: 065
     Dates: start: 200501, end: 201810
  3. RANITIDINE. [Suspect]
     Active Substance: RANITIDINE
  4. ZANTAC [Suspect]
     Active Substance: RANITIDINE HYDROCHLORIDE
  5. RANITIDINE. [Suspect]
     Active Substance: RANITIDINE
     Dosage: UNK, QD
     Route: 065
     Dates: start: 200501, end: 201810
  6. ZANTAC [Suspect]
     Active Substance: RANITIDINE HYDROCHLORIDE
  7. RANITIDINE HCI [Suspect]
     Active Substance: RANITIDINE HYDROCHLORIDE
  8. ZANTAC [Suspect]
     Active Substance: RANITIDINE HYDROCHLORIDE
     Dosage: UNK UNK, QD
     Route: 065
     Dates: start: 200501, end: 201810

REACTIONS (1)
  - Colorectal cancer [Unknown]
